FAERS Safety Report 9119690 (Version 1)
Quarter: 2013Q1

REPORT INFORMATION
  Report Type: Spontaneous
  Country: US (occurrence: US)
  Receive Date: 20130226
  Receipt Date: 20130226
  Transmission Date: 20140127
  Serious: No
  Sender: FDA-Public Use
  Company Number: US-PFIZER INC-2013068155

PATIENT
  Age: 73 Year
  Sex: Male
  Weight: 102 kg

DRUGS (16)
  1. METHOTREXATE SODIUM [Suspect]
     Dosage: UNK
     Dates: start: 2009, end: 2009
  2. LOSARTAN [Concomitant]
     Dosage: 100 MG, 2X/DAY
  3. LEVODOPA-CARBIDOPA [Concomitant]
     Dosage: 25/100 MG, 2X/DAY
  4. FUROSEMIDE [Concomitant]
     Dosage: 20 MG, UNK
  5. POTASSIUM [Concomitant]
     Dosage: 20 MG, UNK
  6. LEVOTHYROXINE SODIUM [Concomitant]
     Dosage: 0.125 MG, 2X/DAY
  7. LISINOPRIL [Concomitant]
     Dosage: 40 MG, 1X/DAY
  8. PREDNISONE [Concomitant]
     Dosage: 2.5 MG, 1X/DAY
  9. FOLIC ACID [Concomitant]
     Dosage: 1 MG, 1X/DAY
  10. LEFLUNOMIDE [Concomitant]
     Dosage: 10 MG, UNK
  11. ZETIA [Concomitant]
     Dosage: 10 MG, 1X/DAY
  12. SULFASALAZINE [Concomitant]
     Dosage: 500 MG, 4X/DAY
  13. CALCIUM [Concomitant]
     Dosage: 600 MG, 2X/DAY
  14. OMEGA 3-6-9 COMPLEX [Concomitant]
     Dosage: UNK, 2X/DAY
  15. VITAMIN B1 [Concomitant]
     Dosage: 100 MG, 1X/DAY
  16. VITAMIN B3 [Concomitant]
     Dosage: 5000 IU, 1X/DAY

REACTIONS (1)
  - Cough [Unknown]
